FAERS Safety Report 24198069 (Version 1)
Quarter: 2024Q3

REPORT INFORMATION
  Report Type: Spontaneous
  Country: JP (occurrence: JP)
  Receive Date: 20240812
  Receipt Date: 20240812
  Transmission Date: 20241016
  Serious: Yes (Hospitalization)
  Sender: SANDOZ
  Company Number: JP-SANDOZ-SDZ2024JP071654

PATIENT
  Sex: Female

DRUGS (3)
  1. RECLAST [Suspect]
     Active Substance: ZOLEDRONIC ACID
     Indication: Product used for unknown indication
     Dosage: 5 MG (IN 1 YEAR)
     Route: 041
     Dates: start: 2020
  2. RECLAST [Suspect]
     Active Substance: ZOLEDRONIC ACID
     Dosage: 5 MG (IN 1 YEAR)
     Route: 041
     Dates: start: 20240413
  3. RECLAST [Suspect]
     Active Substance: ZOLEDRONIC ACID
     Dosage: 5 MG (IN 1 YEAR)
     Route: 041

REACTIONS (2)
  - Physical deconditioning [Unknown]
  - Tooth disorder [Not Recovered/Not Resolved]

NARRATIVE: CASE EVENT DATE: 20240808
